FAERS Safety Report 16116030 (Version 1)
Quarter: 2019Q2

REPORT INFORMATION
  Report Type: Spontaneous
  Country: US (occurrence: US)
  Receive Date: 20190325
  Receipt Date: 20190325
  Transmission Date: 20190711
  Serious: Yes (Life-Threatening)
  Sender: FDA-Public Use
  Company Number: None

PATIENT
  Age: 7 Year
  Sex: Female
  Weight: 23.7 kg

DRUGS (1)
  1. PEGASPARAGINASE [Suspect]
     Active Substance: PEGASPARGASE
     Indication: CHRONIC LYMPHOCYTIC LEUKAEMIA
     Dates: start: 20181209, end: 20181209

REACTIONS (5)
  - Flushing [None]
  - Anaphylactic reaction [None]
  - Cough [None]
  - Swelling face [None]
  - Bronchospasm [None]

NARRATIVE: CASE EVENT DATE: 20181209
